FAERS Safety Report 9823683 (Version 7)
Quarter: 2015Q1

REPORT INFORMATION
  Report Type: Report from Study
  Country: US (occurrence: US)
  Receive Date: 20140116
  Receipt Date: 20150312
  Transmission Date: 20150721
  Serious: Yes (Life-Threatening, Hospitalization)
  Sender: FDA-Public Use
  Company Number: PHEH2014US001253

PATIENT
  Age: 57 Year
  Sex: Female

DRUGS (1)
  1. GILENYA [Suspect]
     Active Substance: FINGOLIMOD HYDROCHLORIDE
     Indication: MULTIPLE SCLEROSIS
     Dosage: 0.5 MG, QD
     Route: 048
     Dates: start: 20110114

REACTIONS (13)
  - Depressed level of consciousness [Unknown]
  - Seizure [Recovered/Resolved]
  - Somnolence [Unknown]
  - Spinal muscular atrophy [Unknown]
  - Central nervous system lymphoma [Unknown]
  - Sepsis [Unknown]
  - Hypotonia [Unknown]
  - Vasogenic cerebral oedema [Recovered/Resolved]
  - Urinary tract infection [Unknown]
  - Multiple sclerosis relapse [Recovered/Resolved]
  - Encephalopathy [Unknown]
  - Central nervous system lesion [Unknown]
  - Osteomyelitis [Unknown]

NARRATIVE: CASE EVENT DATE: 201312
